FAERS Safety Report 24189985 (Version 1)
Quarter: 2024Q3

REPORT INFORMATION
  Report Type: Spontaneous
  Country: US (occurrence: None)
  Receive Date: 20240807
  Receipt Date: 20240807
  Transmission Date: 20241016
  Serious: Yes (Hospitalization)
  Sender: Public
  Company Number: None

PATIENT
  Age: 46 Year
  Sex: Female
  Weight: 58.5 kg

DRUGS (1)
  1. PAXLOVID [Suspect]
     Active Substance: NIRMATRELVIR\RITONAVIR
     Indication: COVID-19
     Dates: start: 20240805, end: 20240805

REACTIONS (4)
  - Diarrhoea [None]
  - Haematochezia [None]
  - Gastric infection [None]
  - Colitis [None]

NARRATIVE: CASE EVENT DATE: 20240805
